FAERS Safety Report 14588396 (Version 1)
Quarter: 2018Q1

REPORT INFORMATION
  Report Type: Spontaneous
  Country: ZA (occurrence: ZA)
  Receive Date: 20180301
  Receipt Date: 20180301
  Transmission Date: 20180509
  Serious: Yes (Hospitalization)
  Sender: FDA-Public Use
  Company Number: ZA-NOVOPROD-587128

PATIENT
  Sex: Male
  Weight: 3.4 kg

DRUGS (1)
  1. NOVOMIX 30 FLEXPEN [Suspect]
     Active Substance: INSULIN ASPART
     Indication: GESTATIONAL DIABETES
     Dosage: 10 UNITS BEFORE AND 5 UNITS BEFORE DINNER
     Route: 064
     Dates: start: 20170613, end: 20171209

REACTIONS (3)
  - Premature baby [Unknown]
  - Pulmonary dysmaturity syndrome [Recovered/Resolved]
  - Foetal exposure during pregnancy [Recovered/Resolved]

NARRATIVE: CASE EVENT DATE: 20170613
